FAERS Safety Report 7334473-1 (Version None)
Quarter: 2011Q1

REPORT INFORMATION
  Report Type: 
  Country: None (occurrence: None)
  Receive Date: 20110307
  Receipt Date: 20110223
  Transmission Date: 20110831
  Serious: Yes (Other)
  Sender: FDA-Public Use
  Company Number: US-JNJFOC-20110101345

PATIENT
  Sex: Male
  Weight: 62.6 kg

DRUGS (3)
  1. DEPAKOTE ER [Concomitant]
     Indication: DRUG THERAPY
     Dosage: HOUR OF SLEEP
     Route: 065
  2. RISPERDAL CONSTA [Suspect]
     Indication: SCHIZOPHRENIA
     Route: 030
  3. RISPERDAL CONSTA [Suspect]
     Dosage: 50 MG + 25 MG (GIVEN TOGETHER FOR 75 MG TOTAL DOSE)
     Route: 030

REACTIONS (7)
  - AFFECT LABILITY [None]
  - AGGRESSION [None]
  - VIOLENCE-RELATED SYMPTOM [None]
  - PSYCHOMOTOR HYPERACTIVITY [None]
  - SELF INJURIOUS BEHAVIOUR [None]
  - PARANOIA [None]
  - OVERDOSE [None]
